FAERS Safety Report 5912907-4 (Version None)
Quarter: 2008Q4

REPORT INFORMATION
  Report Type: 
  Country: None (occurrence: None)
  Receive Date: 20081008
  Receipt Date: 20080929
  Transmission Date: 20090506
  Serious: Yes (Death)
  Sender: FDA-Public Use
  Company Number: TW-GENENTECH-269313

PATIENT
  Age: 73 Year
  Sex: Female

DRUGS (3)
  1. MABTHERA [Suspect]
     Indication: LYMPHOMA
     Dosage: 375 MG/KG, UNK
  2. PREDNISOLONE [Suspect]
     Indication: LYMPHOMA
     Dosage: 100 MG, UNK
  3. VINCRISTINE [Suspect]
     Indication: LYMPHOMA
     Dosage: 2 MG, UNK

REACTIONS (2)
  - CARDIAC ARREST [None]
  - SEPTIC SHOCK [None]
